FAERS Safety Report 7716859-6 (Version None)
Quarter: 2011Q3

REPORT INFORMATION
  Report Type: 
  Country: None (occurrence: None)
  Receive Date: 20110829
  Receipt Date: 20110819
  Transmission Date: 20111222
  Serious: Yes (Death, Other)
  Sender: FDA-Public Use
  Company Number: US-MILLENNIUM PHARMACEUTICALS, INC.-2011-03751

PATIENT
  Age: 72 Year
  Sex: Female

DRUGS (1)
  1. VELCADE [Suspect]
     Indication: CHRONIC MYELOID LEUKAEMIA
     Dosage: 1.5 MG/M2, CYCLIC
     Route: 040

REACTIONS (2)
  - HYPERSENSITIVITY [None]
  - DEATH [None]
